FAERS Safety Report 9157865 (Version 3)
Quarter: 2013Q1

REPORT INFORMATION
  Report Type: Spontaneous
  Country: BR (occurrence: None)
  Receive Date: 20130211
  Receipt Date: 20130320
  Transmission Date: 20140127
  Serious: Yes (Other)
  Sender: FDA-Public Use
  Company Number: BR-1196438

PATIENT
  Age: 33 Year
  Sex: Male
  Weight: 70 kg

DRUGS (1)
  1. TOBRADEX [Suspect]
     Indication: ABSCESS
     Dosage: (OPHTHALMIC)
     Route: 047
     Dates: start: 20130121, end: 20130121

REACTIONS (13)
  - Visual acuity reduced [None]
  - Eyelid margin crusting [None]
  - Eye pain [None]
  - Skin burning sensation [None]
  - Corneal oedema [None]
  - Ocular vascular disorder [None]
  - Conjunctival hyperaemia [None]
  - Eye irritation [None]
  - Eye irritation [None]
  - Instillation site pain [None]
  - Suspected counterfeit product [None]
  - Eye penetration [None]
  - Corneal transplant [None]
